FAERS Safety Report 7099381-2 (Version None)
Quarter: 2010Q4

REPORT INFORMATION
  Report Type: 
  Country: None (occurrence: None)
  Receive Date: 20101112
  Receipt Date: 20090402
  Transmission Date: 20110411
  Serious: No
  Sender: FDA-Public Use
  Company Number: US-KINGPHARMUSA00001-K200900391

PATIENT
  Age: 54 Year
  Sex: Female
  Weight: 50.794 kg

DRUGS (11)
  1. SKELAXIN [Suspect]
     Indication: NECK PAIN
     Dosage: 800 MG, TID OR QID AS NEEDED
     Route: 048
     Dates: start: 20090323
  2. SKELAXIN [Suspect]
     Indication: MUSCULOSKELETAL STIFFNESS
  3. SKELAXIN [Suspect]
     Indication: HEADACHE
  4. DOXYCYCLINE [Concomitant]
     Indication: ROSACEA
     Dosage: 40 MG, QHS
     Route: 048
     Dates: start: 20090410
  5. MOTRIN [Suspect]
     Indication: HEADACHE
     Dosage: 200 MG, TID
     Dates: end: 20090301
  6. CALTRATE                           /00108001/ [Concomitant]
     Indication: SUPPLEMENTATION THERAPY
     Dosage: 2 DF, QD
  7. FISH OIL [Concomitant]
     Indication: SUPPLEMENTATION THERAPY
     Dosage: 2-3 DF, QD
  8. MELATONIN [Concomitant]
     Indication: SUPPLEMENTATION THERAPY
     Dosage: 3 MG, QHS
  9. TYLENOL (CAPLET) [Concomitant]
     Indication: HEADACHE
     Dosage: 650 MG, PRN
  10. TYLENOL (CAPLET) [Concomitant]
     Indication: PAIN
  11. DRAMAMINE                          /00019501/ [Concomitant]
     Indication: MOTION SICKNESS

REACTIONS (3)
  - ABDOMINAL DISCOMFORT [None]
  - ALOPECIA [None]
  - DRUG EFFECT DECREASED [None]
